FAERS Safety Report 24834396 (Version 2)
Quarter: 2025Q3

REPORT INFORMATION
  Report Type: Spontaneous
  Country: JP (occurrence: JP)
  Receive Date: 20250113
  Receipt Date: 20250826
  Transmission Date: 20251021
  Serious: Yes (Other)
  Sender: BRISTOL-MYERS SQUIBB COMPANY
  Company Number: JP-BRISTOL-MYERS SQUIBB COMPANY-2025-003875

PATIENT
  Age: 6 Decade
  Sex: Female

DRUGS (2)
  1. AUGTYRO [Suspect]
     Active Substance: REPOTRECTINIB
     Indication: Non-small cell lung cancer
     Dosage: DOSE : 160MG;     FREQ : TWICE A DAY
     Route: 048
     Dates: start: 20241125
  2. AUGTYRO [Suspect]
     Active Substance: REPOTRECTINIB
     Route: 048

REACTIONS (1)
  - Myopathy [Recovered/Resolved]
